FAERS Safety Report 25727942 (Version 1)
Quarter: 2025Q3

REPORT INFORMATION
  Report Type: Spontaneous
  Country: US (occurrence: None)
  Receive Date: 20250826
  Receipt Date: 20250826
  Transmission Date: 20251020
  Serious: Yes (Life-Threatening, Hospitalization)
  Sender: FDA-CTU
  Company Number: None

PATIENT
  Sex: Female

DRUGS (1)
  1. METOPROLOL [Suspect]
     Active Substance: METOPROLOL

REACTIONS (6)
  - Fall [None]
  - Unresponsive to stimuli [None]
  - Pulse absent [None]
  - Resuscitation [None]
  - Craniofacial fracture [None]
  - Subdural haematoma [None]

NARRATIVE: CASE EVENT DATE: 20241218
